FAERS Safety Report 20756917 (Version 1)
Quarter: 2022Q2

REPORT INFORMATION
  Report Type: Other
  Country: DE (occurrence: DE)
  Receive Date: 20220427
  Receipt Date: 20220427
  Transmission Date: 20220721
  Serious: Yes (Other)
  Sender: FDA-Public Use
  Company Number: DE-MACLEODS PHARMACEUTICALS US LTD-MAC2022035352

PATIENT

DRUGS (7)
  1. ESCITALOPRAM [Suspect]
     Active Substance: ESCITALOPRAM OXALATE
     Indication: Dementia
     Dosage: UNK
     Route: 065
  2. ESCITALOPRAM [Suspect]
     Active Substance: ESCITALOPRAM OXALATE
     Indication: Depressed mood
     Dosage: 10 MILLIGRAM, QD
     Route: 048
     Dates: start: 20210218, end: 20210324
  3. CITALOPRAM [Suspect]
     Active Substance: CITALOPRAM HYDROBROMIDE
     Indication: Dementia
     Dosage: 10 MILLIGRAM, QD (1 TABLET IN THE MORNING)
     Route: 048
     Dates: start: 20200301, end: 20200624
  4. CITALOPRAM [Suspect]
     Active Substance: CITALOPRAM HYDROBROMIDE
     Indication: Depressed mood
  5. ASS-ratiopharm 100 [Concomitant]
     Indication: Product used for unknown indication
     Dosage: UNK (STARTED IN JUL 2020)
     Route: 065
  6. Calcium 500 [Concomitant]
     Indication: Product used for unknown indication
     Dosage: UNK (WITHDRAWN)
     Route: 065
  7. LISINOPRIL AL [Concomitant]
     Indication: Product used for unknown indication
     Dosage: UNK (STARTED IN JUL 2020), WITHDRAWN
     Route: 065

REACTIONS (5)
  - Loss of consciousness [Recovered/Resolved]
  - Femur fracture [Recovered/Resolved]
  - Syncope [Recovered/Resolved]
  - Wound [Recovered/Resolved]
  - Fall [Recovered/Resolved]
